FAERS Safety Report 20405234 (Version 4)
Quarter: 2022Q2

REPORT INFORMATION
  Report Type: Spontaneous
  Country: US (occurrence: US)
  Receive Date: 20220131
  Receipt Date: 20220404
  Transmission Date: 20220720
  Serious: Yes (Other)
  Sender: FDA-Public Use
  Company Number: US-BAYER-2022A013583

PATIENT
  Age: 33 Year
  Sex: Male

DRUGS (5)
  1. KOGENATE FS [Suspect]
     Active Substance: ANTIHEMOPHILIC FACTOR, HUMAN RECOMBINANT
     Dosage: 1750 U, TIW
     Route: 042
  2. KOGENATE FS [Suspect]
     Active Substance: ANTIHEMOPHILIC FACTOR, HUMAN RECOMBINANT
     Dosage: 1750 U, PRN
     Route: 042
  3. KOGENATE FS [Suspect]
     Active Substance: ANTIHEMOPHILIC FACTOR, HUMAN RECOMBINANT
     Dosage: 2 DF, FOR THE COLONOSCOPY PROCEDURE, ONE PRE AND OTHER POST PROCEDURE
     Dates: start: 20220217, end: 20220217
  4. KOGENATE FS [Suspect]
     Active Substance: ANTIHEMOPHILIC FACTOR, HUMAN RECOMBINANT
     Dosage: 1 DF, FOR THE ANKLE BLEED TREATMENT
     Dates: start: 20220222, end: 20220222
  5. KOGENATE FS [Suspect]
     Active Substance: ANTIHEMOPHILIC FACTOR, HUMAN RECOMBINANT
     Dosage: 1 DF, FOR THE ANKLE BLEED TREATMENT
     Dates: start: 20220223, end: 20220223

REACTIONS (10)
  - Haematochezia [Recovered/Resolved]
  - Haematochezia [None]
  - Haemarthrosis [Recovered/Resolved]
  - Colonoscopy [Recovered/Resolved]
  - Haemarthrosis [None]
  - Joint swelling [Recovered/Resolved]
  - Arthralgia [Recovered/Resolved]
  - Sensitivity to weather change [Recovered/Resolved]
  - Arthritis [Recovered/Resolved]
  - Paraesthesia [None]

NARRATIVE: CASE EVENT DATE: 20220120
